FAERS Safety Report 20110700 (Version 1)
Quarter: 2021Q4

REPORT INFORMATION
  Report Type: Spontaneous
  Country: US (occurrence: US)
  Receive Date: 20211124
  Receipt Date: 20211124
  Transmission Date: 20220303
  Serious: No
  Sender: FDA-Public Use
  Company Number: US-TEVA-2021-US-1975440

PATIENT
  Sex: Female

DRUGS (1)
  1. ALBUTEROL SULFATE [Suspect]
     Active Substance: ALBUTEROL SULFATE
     Dosage: USED ONCE DAILY
     Route: 055

REACTIONS (5)
  - Feeling jittery [Unknown]
  - Tremor [Unknown]
  - Feeling abnormal [Unknown]
  - Visual impairment [Unknown]
  - Inappropriate schedule of product administration [Unknown]
